FAERS Safety Report 7963855-X (Version None)
Quarter: 2011Q4

REPORT INFORMATION
  Report Type: 
  Country: None (occurrence: None)
  Receive Date: 20111208
  Receipt Date: 20111129
  Transmission Date: 20120403
  Serious: Yes (Hospitalization, Disabling)
  Sender: FDA-Public Use
  Company Number: GB-JNJFOC-20111200101

PATIENT
  Age: 43 Year
  Sex: Male
  Weight: 78.46 kg

DRUGS (3)
  1. AMISULPRIDE [Suspect]
     Indication: PRODUCT USED FOR UNKNOWN INDICATION
     Route: 048
  2. CHLORPROMAZINE [Suspect]
     Indication: PRODUCT USED FOR UNKNOWN INDICATION
     Route: 065
  3. HALDOL [Suspect]
     Indication: PRODUCT USED FOR UNKNOWN INDICATION
     Route: 030
     Dates: start: 19980101

REACTIONS (18)
  - ERECTILE DYSFUNCTION [None]
  - DEPRESSED MOOD [None]
  - EYE MOVEMENT DISORDER [None]
  - DEPRESSION [None]
  - JAUNDICE [None]
  - DROOLING [None]
  - ASTHENIA [None]
  - FEELING ABNORMAL [None]
  - APATHY [None]
  - PSYCHOTIC DISORDER [None]
  - MASKED FACIES [None]
  - DYSARTHRIA [None]
  - NERVOUS SYSTEM DISORDER [None]
  - TARDIVE DYSKINESIA [None]
  - FATIGUE [None]
  - TREMOR [None]
  - GAIT DISTURBANCE [None]
  - RABBIT SYNDROME [None]
